FAERS Safety Report 18049159 (Version 2)
Quarter: 2020Q3

REPORT INFORMATION
  Report Type: Spontaneous
  Country: US (occurrence: US)
  Receive Date: 20200721
  Receipt Date: 20200722
  Transmission Date: 20201105
  Serious: No
  Sender: FDA-Public Use
  Company Number: US-PFIZER INC-2020277013

PATIENT

DRUGS (2)
  1. TALAZOPARIB. [Suspect]
     Active Substance: TALAZOPARIB
     Dosage: UNK
     Dates: start: 2019
  2. GEDATOLISIB [Suspect]
     Active Substance: GEDATOLISIB
     Dosage: UNK
     Dates: start: 2019

REACTIONS (1)
  - Neoplasm progression [Unknown]
